FAERS Safety Report 10133549 (Version 1)
Quarter: 2014Q2

REPORT INFORMATION
  Report Type: Spontaneous
  Country: US (occurrence: US)
  Receive Date: 20140428
  Receipt Date: 20140428
  Transmission Date: 20141212
  Serious: Yes (Disabling)
  Sender: FDA-Public Use
  Company Number: US-TAKEDA-2014TUS003212

PATIENT
  Sex: Female
  Weight: 48.73 kg

DRUGS (1)
  1. PREVACID SOLUTAB [Suspect]
     Indication: GASTROOESOPHAGEAL REFLUX DISEASE
     Dosage: 30 MG, 1 SOLUTAB QD
     Route: 048
     Dates: start: 200004

REACTIONS (2)
  - Autonomic neuropathy [Not Recovered/Not Resolved]
  - Impaired gastric emptying [Not Recovered/Not Resolved]
